FAERS Safety Report 13758877 (Version 1)
Quarter: 2017Q3

REPORT INFORMATION
  Report Type: Spontaneous
  Country: AU (occurrence: AU)
  Receive Date: 20170717
  Receipt Date: 20170717
  Transmission Date: 20171127
  Serious: Yes (Other)
  Sender: FDA-Public Use
  Company Number: AU-TEVA-785146ISR

PATIENT
  Sex: Male

DRUGS (1)
  1. TEVATIAPINE XR [Suspect]
     Active Substance: QUETIAPINE
     Route: 048

REACTIONS (5)
  - Lower respiratory tract infection [Unknown]
  - Blood lactate dehydrogenase increased [Unknown]
  - Alanine aminotransferase increased [Unknown]
  - Electrocardiogram QT prolonged [Unknown]
  - Bundle branch block left [Unknown]
